FAERS Safety Report 17764208 (Version 1)
Quarter: 2020Q2

REPORT INFORMATION
  Report Type: Spontaneous
  Country: US (occurrence: US)
  Receive Date: 20200511
  Receipt Date: 20200511
  Transmission Date: 20200714
  Serious: Yes (Death, Hospitalization, Other)
  Sender: FDA-Public Use
  Company Number: US-AMGEN-USASP2020073871

PATIENT

DRUGS (3)
  1. FOSCARNET [Concomitant]
     Active Substance: FOSCARNET
     Dosage: UNK
  2. FILGRASTIM [Suspect]
     Active Substance: FILGRASTIM
     Indication: PRODUCT USED FOR UNKNOWN INDICATION
     Dosage: UNK
     Route: 065
  3. GANCICLOVIR. [Concomitant]
     Active Substance: GANCICLOVIR
     Dosage: UNK

REACTIONS (7)
  - Renal disorder [Unknown]
  - Death [Fatal]
  - Blood creatinine increased [Unknown]
  - Neutropenia [Unknown]
  - Cytomegalovirus viraemia [Unknown]
  - White blood cell count decreased [Unknown]
  - Adverse event [Unknown]
